FAERS Safety Report 18341189 (Version 1)
Quarter: 2020Q4

REPORT INFORMATION
  Report Type: Spontaneous
  Country: GB (occurrence: GB)
  Receive Date: 20201003
  Receipt Date: 20201003
  Transmission Date: 20210113
  Serious: Yes (Other)
  Sender: FDA-Public Use
  Company Number: GB-TEVA-2020-GB-1834002

PATIENT
  Age: 71 Year
  Sex: Male
  Weight: 93.3 kg

DRUGS (3)
  1. OXYCODONE HYDROCHLORIDE. [Suspect]
     Active Substance: OXYCODONE HYDROCHLORIDE
     Indication: PERIOPERATIVE ANALGESIA
     Dosage: 10 MG
     Route: 048
     Dates: start: 20200827, end: 20200827
  2. PREGABALIN. [Suspect]
     Active Substance: PREGABALIN
     Indication: PERIOPERATIVE ANALGESIA
     Dosage: 100 MG
     Route: 048
     Dates: start: 20200827, end: 20200827
  3. VITAMIN D [Concomitant]
     Active Substance: VITAMIN D NOS

REACTIONS (1)
  - Unresponsive to stimuli [Recovered/Resolved]

NARRATIVE: CASE EVENT DATE: 20200827
